FAERS Safety Report 10363318 (Version 1)
Quarter: 2014Q3

REPORT INFORMATION
  Report Type: Spontaneous
  Country: IE (occurrence: IE)
  Receive Date: 20140805
  Receipt Date: 20140805
  Transmission Date: 20150326
  Serious: Yes (Death)
  Sender: FDA-Public Use
  Company Number: IE-AMGEN-IRLSP2014058884

PATIENT
  Age: 64 Year
  Sex: Male

DRUGS (8)
  1. IMODIUM [Concomitant]
     Active Substance: LOPERAMIDE HYDROCHLORIDE
     Dosage: UNK
  2. AVASTIN [Concomitant]
     Active Substance: BEVACIZUMAB
     Dosage: UNK
  3. FOLINIC ACID [Concomitant]
     Active Substance: LEUCOVORIN
     Indication: GASTROINTESTINAL CARCINOMA
     Dosage: UNK
  4. FLUOROURACIL. [Concomitant]
     Active Substance: FLUOROURACIL
     Indication: GASTROINTESTINAL CARCINOMA
     Dosage: UNK
  5. EPILIM [Concomitant]
     Active Substance: VALPROATE SODIUM
     Dosage: UNK
  6. MAXOLON [Concomitant]
     Active Substance: METOCLOPRAMIDE HYDROCHLORIDE
     Dosage: UNK
  7. OXALIPLATIN. [Concomitant]
     Active Substance: OXALIPLATIN
     Indication: GASTROINTESTINAL CARCINOMA
     Dosage: UNK
  8. NEULASTA [Suspect]
     Active Substance: PEGFILGRASTIM
     Indication: GASTROINTESTINAL CARCINOMA
     Dosage: 6MG/0.6MLS, POST CHEMO EVERY TWO WEEKS
     Route: 058
     Dates: start: 20130712

REACTIONS (1)
  - Death [Fatal]
